FAERS Safety Report 12077324 (Version 1)
Quarter: 2016Q1

REPORT INFORMATION
  Report Type: Spontaneous
  Country: US (occurrence: US)
  Receive Date: 20160215
  Receipt Date: 20160215
  Transmission Date: 20160526
  Serious: Yes (Other)
  Sender: FDA-Public Use
  Company Number: US-NOVOPROD-479785

PATIENT
  Age: 49 Year
  Sex: Male
  Weight: 124.94 kg

DRUGS (1)
  1. VICTOZA [Suspect]
     Active Substance: LIRAGLUTIDE
     Indication: TYPE 2 DIABETES MELLITUS
     Dosage: 0.6 MG, QD
     Route: 058
     Dates: start: 20151207

REACTIONS (8)
  - Loss of consciousness [Recovered/Resolved]
  - Headache [Recovered/Resolved]
  - Injection site reaction [Recovered/Resolved]
  - Nausea [Recovered/Resolved]
  - Off label use [Not Recovered/Not Resolved]
  - Product quality issue [Recovered/Resolved]
  - Vomiting [Recovered/Resolved]
  - Diarrhoea [Recovered/Resolved]

NARRATIVE: CASE EVENT DATE: 20151207
